FAERS Safety Report 7170310-6 (Version None)
Quarter: 2010Q4

REPORT INFORMATION
  Report Type: 
  Country: None (occurrence: None)
  Receive Date: 20101217
  Receipt Date: 20101116
  Transmission Date: 20110411
  Serious: No
  Sender: FDA-Public Use
  Company Number: A0892850A

PATIENT
  Age: 71 Year
  Sex: Male

DRUGS (2)
  1. LAMICTAL [Suspect]
     Indication: EPILEPSY
     Dosage: 1TAB PER DAY
     Route: 048
     Dates: start: 20100915
  2. SERTRALINE [Concomitant]

REACTIONS (1)
  - RASH [None]
